FAERS Safety Report 14858095 (Version 3)
Quarter: 2018Q2

REPORT INFORMATION
  Report Type: Spontaneous
  Country: US (occurrence: US)
  Receive Date: 20180508
  Receipt Date: 20180629
  Transmission Date: 20180711
  Serious: No
  Sender: FDA-Public Use
  Company Number: US-AMGEN-USASP2018060445

PATIENT
  Age: 16 Year
  Sex: Female
  Weight: 72.8 kg

DRUGS (3)
  1. ENBREL [Suspect]
     Active Substance: ETANERCEPT
     Dosage: 50 MG, QWK
     Route: 065
  2. METHOTREXATE. [Concomitant]
     Active Substance: METHOTREXATE
     Dosage: UNK
     Dates: end: 2017
  3. ENBREL [Suspect]
     Active Substance: ETANERCEPT
     Indication: JUVENILE IDIOPATHIC ARTHRITIS
     Dosage: 50 MG, QWK
     Route: 065
     Dates: start: 2016

REACTIONS (6)
  - Injection site infection [Recovered/Resolved]
  - Injection site induration [Recovered/Resolved]
  - Pain [Unknown]
  - Injection site pain [Unknown]
  - Abdominal pain upper [Unknown]
  - Product storage error [Unknown]

NARRATIVE: CASE EVENT DATE: 201804
